FAERS Safety Report 9692941 (Version 1)
Quarter: 2013Q4

REPORT INFORMATION
  Report Type: Spontaneous
  Country: US (occurrence: US)
  Receive Date: 20131118
  Receipt Date: 20131118
  Transmission Date: 20140711
  Serious: No
  Sender: FDA-Public Use
  Company Number: US-GLAXOSMITHKLINE-A1036133A

PATIENT
  Age: 80 Year
  Sex: Female

DRUGS (6)
  1. COREG CR [Suspect]
     Indication: BLOOD PRESSURE
     Route: 048
  2. AMLODIPINE [Concomitant]
  3. HYDROCHLOROTHIAZIDE [Concomitant]
  4. POTASSIUM [Concomitant]
  5. ATORVASTATIN [Concomitant]
  6. BENICAR [Concomitant]

REACTIONS (5)
  - Syncope [Recovered/Resolved]
  - Hypotension [Unknown]
  - Fall [Unknown]
  - Mouth haemorrhage [Unknown]
  - Blood pressure increased [Unknown]
